FAERS Safety Report 7555007-2 (Version None)
Quarter: 2011Q2

REPORT INFORMATION
  Report Type: 
  Country: None (occurrence: None)
  Receive Date: 20110617
  Receipt Date: 20110608
  Transmission Date: 20111010
  Serious: Yes (Other)
  Sender: FDA-Public Use
  Company Number: US-JNJFOC-20110605009

PATIENT
  Age: 57 Year
  Sex: Female
  Weight: 73.48 kg

DRUGS (3)
  1. MONISTAT 7 [Suspect]
     Indication: FUNGAL INFECTION
     Dosage: 5 DOSES, ONCE AT NIGHT
     Route: 067
     Dates: start: 20110602
  2. MONISTAT 7 [Suspect]
     Route: 067
  3. LEVOXYL [Concomitant]
     Indication: THYROID DISORDER
     Route: 065

REACTIONS (3)
  - HYPERSENSITIVITY [None]
  - INTENTIONAL DRUG MISUSE [None]
  - VULVOVAGINAL BURNING SENSATION [None]
